FAERS Safety Report 6272669-0 (Version None)
Quarter: 2009Q3

REPORT INFORMATION
  Report Type: 
  Country: None (occurrence: None)
  Receive Date: 20090717
  Receipt Date: 20090708
  Transmission Date: 20100115
  Serious: Yes (Hospitalization)
  Sender: FDA-Public Use
  Company Number: CN-ABBOTT-09P-035-0581894-00

PATIENT
  Age: 16 Year
  Sex: Male

DRUGS (1)
  1. LIPANTHYL [Suspect]
     Indication: HYPERTRIGLYCERIDAEMIA

REACTIONS (2)
  - HEPATIC FUNCTION ABNORMAL [None]
  - RHABDOMYOLYSIS [None]
